FAERS Safety Report 8335067-1 (Version None)
Quarter: 2012Q2

REPORT INFORMATION
  Report Type: 
  Country: None (occurrence: None)
  Receive Date: 20120503
  Receipt Date: 20120423
  Transmission Date: 20120825
  Serious: Yes (Other)
  Sender: FDA-Public Use
  Company Number: BR-MEDIMMUNE-MEDI-0015438

PATIENT
  Sex: Female
  Weight: 10.7 kg

DRUGS (4)
  1. SYNAGIS [Suspect]
     Indication: BRONCHIOLITIS
     Dates: start: 20110810, end: 20110901
  2. PHENOBARBITAL SODIUM 100MG CAP [Concomitant]
  3. SYNAGIS [Suspect]
     Dates: start: 20110616, end: 20110714
  4. VALPROIC ACID [Concomitant]

REACTIONS (4)
  - INFANTILE SPASMS [None]
  - RESTLESSNESS [None]
  - GASTROOESOPHAGEAL REFLUX DISEASE [None]
  - BRONCHIOLITIS [None]
